FAERS Safety Report 8181255-7 (Version None)
Quarter: 2012Q1

REPORT INFORMATION
  Report Type: 
  Country: None (occurrence: None)
  Receive Date: 20120302
  Receipt Date: 20120229
  Transmission Date: 20120608
  Serious: Yes (Hospitalization)
  Sender: FDA-Public Use
  Company Number: US-BAYER-2011-091025

PATIENT
  Age: 33 Year
  Sex: Female
  Weight: 68.027 kg

DRUGS (1)
  1. YASMIN [Suspect]
     Indication: CONTRACEPTION
     Dosage: UNK
     Dates: start: 20051001, end: 20071101

REACTIONS (7)
  - BILIARY COLIC [None]
  - EMOTIONAL DISTRESS [None]
  - ANXIETY [None]
  - BILE DUCT STONE [None]
  - HEPATITIS ACUTE [None]
  - PAIN [None]
  - CHOLECYSTITIS ACUTE [None]
